FAERS Safety Report 20119654 (Version 4)
Quarter: 2025Q3

REPORT INFORMATION
  Report Type: Report from Study
  Country: US (occurrence: US)
  Receive Date: 20211126
  Receipt Date: 20250708
  Transmission Date: 20251021
  Serious: No
  Sender: KYOWA
  Company Number: US-KYOWAKIRIN-2021BKK019649

PATIENT

DRUGS (4)
  1. NOURIANZ [Suspect]
     Active Substance: ISTRADEFYLLINE
     Indication: Parkinson^s disease
     Dosage: 40 MG, QD
     Route: 048
     Dates: start: 202108
  2. NOURIANZ [Suspect]
     Active Substance: ISTRADEFYLLINE
     Dosage: 40 MG, ONCE DAILY
     Route: 048
     Dates: start: 20210814
  3. COVID-19 VACCINE NOS [Suspect]
     Active Substance: COVID-19 VACCINE
     Indication: Product used for unknown indication
     Route: 065
     Dates: start: 2021
  4. VARICELLA-ZOSTER VIRUS STRAIN OKA/MERCK LIVE ANTIGEN [Suspect]
     Active Substance: VARICELLA-ZOSTER VIRUS STRAIN OKA/MERCK LIVE ANTIGEN
     Indication: Product used for unknown indication
     Route: 065
     Dates: start: 2021

REACTIONS (8)
  - Pain [Unknown]
  - Abdominal pain upper [Unknown]
  - Tremor [Unknown]
  - On and off phenomenon [Unknown]
  - Constipation [Unknown]
  - Adverse event [Unknown]
  - Therapy partial responder [Unknown]
  - Medication error [Unknown]

NARRATIVE: CASE EVENT DATE: 20210101
